FAERS Safety Report 21565060 (Version 1)
Quarter: 2022Q4

REPORT INFORMATION
  Report Type: Spontaneous
  Country: HR (occurrence: HR)
  Receive Date: 20221108
  Receipt Date: 20221108
  Transmission Date: 20230113
  Serious: Yes (Hospitalization, Other)
  Sender: FDA-Public Use
  Company Number: HR-002147023-NVSC2022HR249728

PATIENT
  Sex: Female

DRUGS (6)
  1. CYCLOSPORINE [Suspect]
     Active Substance: CYCLOSPORINE
     Indication: Product used for unknown indication
     Dosage: 100 MG (2X50 MG)
     Route: 065
  2. ANDOL [Concomitant]
     Active Substance: ASPIRIN
     Indication: Product used for unknown indication
     Dosage: 100 MG, QD
     Route: 065
  3. CLOPIDOGREL BISULFATE [Concomitant]
     Active Substance: CLOPIDOGREL BISULFATE
     Indication: Product used for unknown indication
     Dosage: UNK
     Route: 065
  4. BISOPROLOL FUMARATE [Concomitant]
     Active Substance: BISOPROLOL FUMARATE
     Indication: Product used for unknown indication
     Dosage: 2.5 MG, QD
     Route: 065
  5. CONTROLOC [Concomitant]
     Active Substance: PANTOPRAZOLE SODIUM
     Indication: Product used for unknown indication
     Dosage: 40 MG, QD (1X1 IN THE MORNING, BEFORE ALL OTHER MEDICATIONS)
     Route: 065
  6. MEDROL [Concomitant]
     Active Substance: METHYLPREDNISOLONE
     Indication: Product used for unknown indication
     Dosage: UNK
     Route: 065

REACTIONS (10)
  - Acute coronary syndrome [Recovered/Resolved]
  - Coronary artery stenosis [Recovered/Resolved]
  - Blood pressure decreased [Unknown]
  - Alanine aminotransferase increased [Unknown]
  - Low density lipoprotein increased [Unknown]
  - Blood cholesterol increased [Unknown]
  - Conduction disorder [Unknown]
  - Blood triglycerides increased [Unknown]
  - High density lipoprotein increased [Unknown]
  - High density lipoprotein decreased [Unknown]

NARRATIVE: CASE EVENT DATE: 20201101
